FAERS Safety Report 10266303 (Version 2)
Quarter: 2014Q2

REPORT INFORMATION
  Report Type: Spontaneous
  Country: US (occurrence: US)
  Receive Date: 20140627
  Receipt Date: 20140630
  Transmission Date: 20141212
  Serious: No
  Sender: FDA-Public Use
  Company Number: US-009507513-1406USA011107

PATIENT
  Sex: Female

DRUGS (3)
  1. NEXPLANON [Suspect]
     Indication: CONTRACEPTION
     Dosage: UNK, 1 ROD
     Route: 058
     Dates: start: 201311, end: 20140620
  2. CONCERTA [Concomitant]
     Dosage: UNK
  3. ADDERALL TABLETS [Concomitant]
     Route: 048

REACTIONS (4)
  - Unintended pregnancy [Unknown]
  - Device deployment issue [Unknown]
  - Device difficult to use [Unknown]
  - Drug ineffective [Unknown]
